FAERS Safety Report 8203191-X (Version None)
Quarter: 2012Q1

REPORT INFORMATION
  Report Type: 
  Country: None (occurrence: None)
  Receive Date: 20120312
  Receipt Date: 20120308
  Transmission Date: 20120608
  Serious: No
  Sender: FDA-Public Use
  Company Number: US-PFIZER INC-2012062759

PATIENT
  Sex: Female
  Weight: 68.934 kg

DRUGS (4)
  1. KEPPRA XR [Concomitant]
     Indication: CONVULSION
     Dosage: UNK
  2. ALBUTEROL [Concomitant]
     Indication: ASTHMA
     Dosage: UNK
  3. CHANTIX [Suspect]
     Dosage: 0.5 MG, 2X/DAY
     Route: 048
     Dates: start: 20120301
  4. CHANTIX [Suspect]
     Indication: SMOKING CESSATION THERAPY
     Dosage: 0.5 MG, 1X/DAY
     Route: 048
     Dates: start: 20120304, end: 20120301

REACTIONS (5)
  - DRUG INEFFECTIVE [None]
  - ALOPECIA [None]
  - NERVOUSNESS [None]
  - AMNESIA [None]
  - ABDOMINAL DISCOMFORT [None]
